FAERS Safety Report 26056096 (Version 3)
Quarter: 2025Q4

REPORT INFORMATION
  Report Type: Spontaneous
  Country: EU (occurrence: EU)
  Receive Date: 20251118
  Receipt Date: 20251211
  Transmission Date: 20260117
  Serious: Yes (Life-Threatening, Hospitalization, Other)
  Sender: SANOFI AVENTIS
  Company Number: EU-PEI-202500023126

PATIENT
  Age: 3 Month
  Sex: Female

DRUGS (3)
  1. BEYFORTUS [Suspect]
     Active Substance: NIRSEVIMAB-ALIP
     Indication: Respiratory syncytial virus immunisation
     Dosage: 1 DF, 1X
     Dates: start: 20251013, end: 20251013
  2. ROTARIX [Suspect]
     Active Substance: HUMAN ROTAVIRUS A TYPE G1P(8) STRAIN RIX4414 LIVE ANTIGEN
     Indication: Immunisation
     Dosage: 2 DF
     Route: 065
     Dates: start: 20251013
  3. BEXSERO [Suspect]
     Active Substance: MENINGOCOCCAL GROUP B VACCINE
     Indication: Immunisation
     Dates: start: 20251013

REACTIONS (2)
  - Kawasaki^s disease [Not Recovered/Not Resolved]
  - Multisystem inflammatory syndrome in children [Not Recovered/Not Resolved]

NARRATIVE: CASE EVENT DATE: 20251013
